FAERS Safety Report 10495739 (Version 1)
Quarter: 2014Q3

REPORT INFORMATION
  Report Type: Spontaneous
  Country: US (occurrence: None)
  Receive Date: 20140815
  Receipt Date: 20140815
  Transmission Date: 20150326
  Serious: Yes (Hospitalization, Other)
  Sender: FDA-Public Use
  Company Number: ADR-2013-02295

PATIENT
  Age: 68 Year
  Sex: Male

DRUGS (2)
  1. COMPOUNDED BACLOFEN 5000 MCG/ML [Suspect]
     Active Substance: BACLOFEN
     Indication: MUSCLE SPASTICITY
  2. MORPHINE 3 MG/ML [Suspect]
     Active Substance: MORPHINE
     Indication: MUSCLE SPASTICITY

REACTIONS (3)
  - Blood pressure increased [None]
  - Depressed level of consciousness [None]
  - Overdose [None]

NARRATIVE: CASE EVENT DATE: 20131208
